FAERS Safety Report 6935456-3 (Version None)
Quarter: 2010Q3

REPORT INFORMATION
  Report Type: 
  Country: None (occurrence: None)
  Receive Date: 20100823
  Receipt Date: 20100810
  Transmission Date: 20110219
  Serious: No
  Sender: FDA-Public Use
  Company Number: US-BIOGENIDEC-2010BI027791

PATIENT
  Age: 56 Year
  Sex: Female

DRUGS (1)
  1. TYSABRI [Suspect]
     Indication: MULTIPLE SCLEROSIS
     Route: 042
     Dates: start: 20090825

REACTIONS (5)
  - BLOOD POTASSIUM DECREASED [None]
  - FALL [None]
  - GAIT DISTURBANCE [None]
  - VITAMIN B12 DEFICIENCY [None]
  - VITAMIN D DEFICIENCY [None]
